FAERS Safety Report 15808319 (Version 10)
Quarter: 2022Q3

REPORT INFORMATION
  Report Type: Report from Study
  Country: US (occurrence: US)
  Receive Date: 20190110
  Receipt Date: 20220802
  Transmission Date: 20221026
  Serious: Yes (Hospitalization, Other)
  Sender: FDA-Public Use
  Company Number: US-GILEAD-2018-0378690

PATIENT
  Age: 65 Year
  Sex: Female
  Weight: 56 kg

DRUGS (68)
  1. AXICABTAGENE CILOLEUCEL [Suspect]
     Active Substance: AXICABTAGENE CILOLEUCEL
     Indication: Diffuse large B-cell lymphoma
     Dosage: 68 ML, ONCE
     Route: 042
     Dates: start: 20181205, end: 20181205
  2. CYCLOPHOSPHAMIDE [Suspect]
     Active Substance: CYCLOPHOSPHAMIDE
     Indication: Bone marrow conditioning regimen
     Dosage: 500 MG/M2, QD
     Route: 042
     Dates: start: 20181130, end: 20181202
  3. FLUDARABINE [Suspect]
     Active Substance: FLUDARABINE PHOSPHATE
     Indication: Bone marrow conditioning regimen
     Dosage: 30 MG/M2, QD
     Route: 042
     Dates: start: 20181130, end: 20181202
  4. MESNA [Suspect]
     Active Substance: MESNA
     Indication: Prophylaxis
     Dosage: 125 MG/M2, BID
     Route: 042
     Dates: start: 20181130, end: 20181202
  5. MUCOMYST [Concomitant]
     Active Substance: ACETYLCYSTEINE
  6. ZYLOPRIM [Concomitant]
     Active Substance: ALLOPURINOL
  7. CALCIUM CARBONATE\CHOLECALCIFEROL [Concomitant]
     Active Substance: CALCIUM CARBONATE\CHOLECALCIFEROL
  8. HIBICLENS [Concomitant]
     Active Substance: CHLORHEXIDINE GLUCONATE
  9. ROBITUSSIN (GUAIFENESIN) [Concomitant]
     Active Substance: GUAIFENESIN
  10. IPRATROPIUM BROMIDE [Concomitant]
     Active Substance: IPRATROPIUM BROMIDE
     Dosage: 500,UG,AS NECESSARY
     Route: 050
     Dates: start: 20181202, end: 20181206
  11. LEVOTHYROXINE [Concomitant]
     Active Substance: LEVOTHYROXINE
     Dosage: 50,UG,DAILY
     Route: 048
     Dates: start: 20180514
  12. LEVOTHYROXINE [Concomitant]
     Active Substance: LEVOTHYROXINE
     Dosage: UNK
     Dates: start: 201912
  13. MAGNESIUM OXIDE [Concomitant]
     Active Substance: MAGNESIUM OXIDE
  14. TOPROL XL [Concomitant]
     Active Substance: METOPROLOL SUCCINATE
  15. ZOFRAN [Concomitant]
     Active Substance: ONDANSETRON HYDROCHLORIDE
  16. PREVNAR 13 [Concomitant]
     Active Substance: PNEUMOCOCCAL 13-VALENT CONJUGATE VACCINE
  17. COMPAZINE [Concomitant]
     Active Substance: PROCHLORPERAZINE MALEATE
  18. SODIUM CHLORIDE [Concomitant]
     Active Substance: SODIUM CHLORIDE
  19. VITAMINS NOS [Concomitant]
     Active Substance: VITAMINS
  20. ALBUTEROL [Concomitant]
     Active Substance: ALBUTEROL
  21. CRANBERRY [Concomitant]
     Active Substance: CRANBERRY
  22. DELTASONE [Concomitant]
     Active Substance: PREDNISONE
  23. MAGNESIUM OXIDE [Concomitant]
     Active Substance: MAGNESIUM OXIDE
     Dosage: 200,MG,DAILY
     Route: 048
     Dates: start: 20180514
  24. MAGNESIUM OXIDE [Concomitant]
     Active Substance: MAGNESIUM OXIDE
     Dosage: 400,MG,ONCE
     Route: 048
     Dates: start: 20200305, end: 20200305
  25. METOPROLOL SUCCINATE [Concomitant]
     Active Substance: METOPROLOL SUCCINATE
     Dosage: 25,MG,DAILY
     Route: 048
     Dates: start: 20180514
  26. CALCIUM CARBONATE [Concomitant]
     Active Substance: CALCIUM CARBONATE
     Dosage: 600,MG,DAILY
     Route: 048
     Dates: start: 20180514
  27. DOCUSATE SODIUM [Concomitant]
     Active Substance: DOCUSATE SODIUM
     Dosage: 100,MG,AS NECESSARY
     Route: 048
     Dates: start: 20180514
  28. DOCUSATE SODIUM [Concomitant]
     Active Substance: DOCUSATE SODIUM
     Dosage: 100,MG,AS NECESSARY
     Route: 048
     Dates: start: 20181203, end: 20181215
  29. DOCUSATE SODIUM [Concomitant]
     Active Substance: DOCUSATE SODIUM
     Dosage: 100,MG,TWICE DAILY
     Route: 048
     Dates: start: 20190103, end: 20190103
  30. ONDANSETRON [Concomitant]
     Active Substance: ONDANSETRON
     Dosage: 8,MG,AS NECESSARY
     Route: 048
     Dates: start: 20180604
  31. ONDANSETRON [Concomitant]
     Active Substance: ONDANSETRON
     Dosage: 8,MG,AS NECESSARY
     Route: 048
     Dates: start: 20181202, end: 20181219
  32. ONDANSETRON [Concomitant]
     Active Substance: ONDANSETRON
     Dosage: 4,MG,ONCE
     Route: 042
     Dates: start: 20190228, end: 20190228
  33. ONDANSETRON [Concomitant]
     Active Substance: ONDANSETRON
     Dosage: 4,MG,ONCE
     Route: 042
     Dates: start: 20190314, end: 20190314
  34. PROCHLORPERAZINE [Concomitant]
     Active Substance: PROCHLORPERAZINE
     Dosage: 10,MG,AS NECESSARY
     Route: 048
     Dates: start: 20180604
  35. PROCHLORPERAZINE [Concomitant]
     Active Substance: PROCHLORPERAZINE
     Dosage: 10,MG,AS NECESSARY
     Route: 048
     Dates: start: 20181202, end: 20181219
  36. FEXOFENADINE [Concomitant]
     Active Substance: FEXOFENADINE HYDROCHLORIDE
     Dosage: 180,MG,DAILY
     Route: 048
     Dates: start: 20180925
  37. FEXOFENADINE [Concomitant]
     Active Substance: FEXOFENADINE HYDROCHLORIDE
     Dosage: 180,MG,DAILY
     Route: 048
     Dates: start: 20190103, end: 20190106
  38. FLUTICASONE [Concomitant]
     Active Substance: FLUTICASONE
     Dosage: 1,OTHER,TWICE DAILY
     Route: 055
     Dates: start: 20180925
  39. DEXAMETHASONE [Concomitant]
     Active Substance: DEXAMETHASONE
     Dosage: 30,MG,DAILY
     Route: 048
     Dates: start: 20181101
  40. ACETYLCYSTEINE [Concomitant]
     Active Substance: ACETYLCYSTEINE
     Dosage: 4,ML,FOUR TIMES DAILY
     Route: 050
     Dates: start: 20181202, end: 20181219
  41. ACETYLCYSTEINE [Concomitant]
     Active Substance: ACETYLCYSTEINE
     Dosage: 4,ML,FOUR TIMES DAILY
     Route: 055
     Dates: start: 20190103, end: 20190106
  42. CHLORHEXIDINE GLUCONATE [Concomitant]
     Active Substance: CHLORHEXIDINE GLUCONATE
     Dosage: UNKNOWN,OTHER,DAILY
     Route: 061
     Dates: start: 20181202, end: 20190106
  43. CHLORHEXIDINE GLUCONATE [Concomitant]
     Active Substance: CHLORHEXIDINE GLUCONATE
     Dosage: 1,OTHER,DAILY
     Route: 061
     Dates: start: 20200303
  44. GUAIFENESIN [Concomitant]
     Active Substance: GUAIFENESIN
     Dosage: 200,MG,AS NECESSARY
     Route: 048
     Dates: start: 20181202, end: 20181219
  45. GUAIFENESIN [Concomitant]
     Active Substance: GUAIFENESIN
     Dosage: 200,MG,AS NECESSARY
     Route: 048
     Dates: start: 20200304, end: 20200307
  46. LORAZEPAM [Concomitant]
     Active Substance: LORAZEPAM
     Dosage: 0.25,MG,AS NECESSARY
     Route: 048
     Dates: start: 20181202, end: 20181203
  47. LORAZEPAM [Concomitant]
     Active Substance: LORAZEPAM
     Dosage: 0.25,MG,ONCE
     Route: 048
     Dates: start: 20200304, end: 20200304
  48. POTASSIUM CHLORIDE [Concomitant]
     Active Substance: POTASSIUM CHLORIDE
     Dosage: 20-80,OTHER,AS NECESSARY
     Route: 048
     Dates: start: 20181202, end: 20181203
  49. POTASSIUM CHLORIDE [Concomitant]
     Active Substance: POTASSIUM CHLORIDE
     Dosage: 20-80,OTHER,AS NECESSARY
     Route: 048
     Dates: start: 20190103, end: 20190106
  50. POTASSIUM CHLORIDE [Concomitant]
     Active Substance: POTASSIUM CHLORIDE
     Dosage: 20,OTHER,ONCE
     Route: 048
     Dates: start: 20200306, end: 20200306
  51. ALLOPURINOL [Concomitant]
     Active Substance: ALLOPURINOL
     Dosage: 300,MG,DAILY
     Route: 048
     Dates: start: 20181203, end: 20181205
  52. CALCIUM CARBONATE\CHOLECALCIFEROL [Concomitant]
     Active Substance: CALCIUM CARBONATE\CHOLECALCIFEROL
     Dosage: 1,OTHER,DAILY
     Route: 048
     Dates: start: 20181203, end: 20181219
  53. ENOXAPARIN [Concomitant]
     Active Substance: ENOXAPARIN
     Dosage: 40,MG,DAILY
     Route: 058
     Dates: start: 20181203, end: 20181219
  54. ENOXAPARIN [Concomitant]
     Active Substance: ENOXAPARIN
     Dosage: 40,MG,DAILY
     Route: 058
     Dates: start: 20190103, end: 20190103
  55. LEVOFLOXACIN [Concomitant]
     Active Substance: LEVOFLOXACIN
     Dosage: 500,MG,DAILY
     Route: 048
     Dates: start: 20181203, end: 20181205
  56. LEVOFLOXACIN [Concomitant]
     Active Substance: LEVOFLOXACIN
     Dosage: 750,MG,DAILY
     Route: 048
     Dates: start: 20200303, end: 20200307
  57. LEVETIRACETAM [Concomitant]
     Active Substance: LEVETIRACETAM
     Dosage: 750,MG,TWICE DAILY
     Route: 048
     Dates: start: 20181204, end: 20181205
  58. LEVETIRACETAM [Concomitant]
     Active Substance: LEVETIRACETAM
     Dosage: 750,MG,TWICE DAILY
     Route: 048
     Dates: start: 20190103, end: 20190105
  59. SULFAMETHOXAZOLE\TRIMETHOPRIM [Concomitant]
     Active Substance: SULFAMETHOXAZOLE\TRIMETHOPRIM
     Dosage: 400-80,MG,DAILY
     Route: 048
     Dates: start: 20181204, end: 20181204
  60. DIPHENHYDRAMINE [Concomitant]
     Active Substance: DIPHENHYDRAMINE
     Dosage: 25-50,MG,AS NECESSARY
     Route: 042
     Dates: start: 20181205, end: 20181206
  61. METOPROLOL TARTRATE [Concomitant]
     Active Substance: METOPROLOL TARTRATE
     Dosage: 6.25,MG,FOUR TIMES DAILY
     Route: 048
     Dates: start: 20181205, end: 20181219
  62. METOPROLOL TARTRATE [Concomitant]
     Active Substance: METOPROLOL TARTRATE
     Dosage: 6.25,MG,FOUR TIMES DAILY
     Route: 048
     Dates: start: 20190103, end: 20190106
  63. SODIUM CHLORIDE [Concomitant]
     Active Substance: SODIUM CHLORIDE
     Dosage: 10,OTHER,CONTINUOUS
     Route: 042
     Dates: start: 20181205, end: 20181205
  64. ACYCLOVIR [Concomitant]
     Active Substance: ACYCLOVIR
     Dosage: 400,MG,THREE TIMES DAILY
     Route: 048
     Dates: start: 20181205, end: 20181219
  65. ACYCLOVIR [Concomitant]
     Active Substance: ACYCLOVIR
     Dosage: 400,MG,THREE TIMES DAILY
     Route: 048
     Dates: start: 20190103, end: 20190106
  66. NYSTATIN [Concomitant]
     Active Substance: NYSTATIN
     Dosage: 500000,OTHER,FOUR TIMES DAILY
     Route: 050
     Dates: start: 20181206, end: 20181219
  67. LIDOCAINE [Concomitant]
     Active Substance: LIDOCAINE
     Dosage: 1,OTHER,AS NECESSARY
     Route: 062
     Dates: start: 20181207, end: 20181209
  68. SODIUM CHLORIDE [Concomitant]
     Active Substance: SODIUM CHLORIDE
     Dosage: 100,OTHER,CONTINUOUS
     Route: 042
     Dates: start: 20181213, end: 20181214

REACTIONS (5)
  - Pneumonia [Recovered/Resolved]
  - Pyrexia [Recovered/Resolved]
  - Pneumonia [Recovered/Resolved]
  - Pneumonia [Recovered/Resolved]
  - Plasma cell myeloma [Not Recovered/Not Resolved]

NARRATIVE: CASE EVENT DATE: 20181202
